FAERS Safety Report 9769886 (Version 1)
Quarter: 2013Q4

REPORT INFORMATION
  Report Type: Spontaneous
  Country: US (occurrence: US)
  Receive Date: 20131218
  Receipt Date: 20131218
  Transmission Date: 20140711
  Serious: No
  Sender: FDA-Public Use
  Company Number: US-VERTEX PHARMACEUTICALS INC-AE-2011-000717

PATIENT
  Age: 51 Year
  Sex: Female
  Weight: 58.18 kg

DRUGS (8)
  1. INCIVEK [Suspect]
     Indication: HEPATITIS C
     Route: 048
     Dates: start: 20110802
  2. RIBAVIRIN [Concomitant]
     Indication: HEPATITIS C
     Dates: start: 20110802
  3. NORCO [Concomitant]
  4. NAPROSYN [Concomitant]
     Dates: start: 201107
  5. GABAPENTIN [Concomitant]
  6. LEVOTHYROXINE [Concomitant]
  7. CLONAZEPAM [Concomitant]
  8. STEROID INJECTIONS [Concomitant]
     Indication: INTERVERTEBRAL DISC PROTRUSION
     Dates: start: 20110511

REACTIONS (4)
  - Inappropriate schedule of drug administration [Recovered/Resolved]
  - Decreased appetite [Recovered/Resolved]
  - Muscle spasms [Recovered/Resolved]
  - Nausea [Recovered/Resolved]
